FAERS Safety Report 18918727 (Version 2)
Quarter: 2021Q2

REPORT INFORMATION
  Report Type: Other
  Country: AT (occurrence: AT)
  Receive Date: 20210220
  Receipt Date: 20210417
  Transmission Date: 20210717
  Serious: Yes (Hospitalization)
  Sender: FDA-Public Use
  Company Number: AT-ROCHE-2771578

PATIENT
  Age: 52 Year
  Sex: Female
  Weight: 95 kg

DRUGS (43)
  1. ATEZOLIZUMAB. [Suspect]
     Active Substance: ATEZOLIZUMAB
     Route: 042
     Dates: start: 20210119
  2. XANOR [Concomitant]
     Active Substance: ALPRAZOLAM
     Dosage: PRN (AS NEEDED)
  3. PARACODIN [Concomitant]
     Dates: start: 20190426
  4. BEPANTHEN [Concomitant]
     Dates: start: 20200817
  5. LASIX [Concomitant]
     Active Substance: FUROSEMIDE
     Indication: DYSPNOEA
     Dates: start: 20210209, end: 20210209
  6. ATEZOLIZUMAB. [Suspect]
     Active Substance: ATEZOLIZUMAB
     Route: 042
     Dates: start: 20200615
  7. ATEZOLIZUMAB. [Suspect]
     Active Substance: ATEZOLIZUMAB
     Route: 042
     Dates: start: 20200727
  8. HYDAL RETARD [Concomitant]
     Active Substance: HYDROMORPHONE HYDROCHLORIDE
  9. HYDAL [Concomitant]
     Active Substance: HYDROMORPHONE HYDROCHLORIDE
     Dosage: PRN (AS NEEDED)
  10. FOSTER [Concomitant]
     Active Substance: BECLOMETHASONE\FORMOTEROL
     Dates: start: 202002
  11. NOVALGIN (AUSTRIA) [Concomitant]
     Dates: start: 202002
  12. FORTECORTIN [Concomitant]
     Active Substance: DEXAMETHASONE
     Dates: start: 20201229
  13. MIRANAX [Concomitant]
     Dosage: PRN (AS NEEDED)
     Dates: start: 20200817
  14. MORPHIN [Concomitant]
     Active Substance: MORPHINE
     Dates: start: 20200817
  15. ZOFRAN [Concomitant]
     Active Substance: ONDANSETRON HYDROCHLORIDE
     Dosage: PRN (AS NEEDED)
  16. XGEVA [Concomitant]
     Active Substance: DENOSUMAB
     Dates: start: 20200313
  17. LYRICA [Concomitant]
     Active Substance: PREGABALIN
     Dates: start: 20210205
  18. ATEZOLIZUMAB. [Suspect]
     Active Substance: ATEZOLIZUMAB
     Route: 042
     Dates: start: 20200907
  19. ATEZOLIZUMAB. [Suspect]
     Active Substance: ATEZOLIZUMAB
     Route: 042
     Dates: start: 20200525
  20. PREDNISOLONE. [Concomitant]
     Active Substance: PREDNISOLONE
     Dates: start: 20210205, end: 20210209
  21. ATEZOLIZUMAB. [Suspect]
     Active Substance: ATEZOLIZUMAB
     Route: 042
     Dates: start: 20200817
  22. ATEZOLIZUMAB. [Suspect]
     Active Substance: ATEZOLIZUMAB
     Route: 042
     Dates: start: 20201229
  23. PANTOLOC [Concomitant]
     Active Substance: PANTOPRAZOLE SODIUM
     Dates: start: 201911
  24. DRONABINOL. [Concomitant]
     Active Substance: DRONABINOL
  25. VENDAL [Concomitant]
     Active Substance: MORPHINE HYDROCHLORIDE
     Dates: start: 202002
  26. MYCOSTATIN [Concomitant]
     Active Substance: NYSTATIN
     Dates: start: 20200706
  27. NAVELBINE [Concomitant]
     Active Substance: VINORELBINE TARTRATE
     Indication: NEOPLASM MALIGNANT
  28. ATEZOLIZUMAB. [Suspect]
     Active Substance: ATEZOLIZUMAB
     Route: 042
     Dates: start: 20200417
  29. EUTHYROX [Concomitant]
     Active Substance: LEVOTHYROXINE SODIUM
  30. FORTECORTIN [Concomitant]
     Active Substance: DEXAMETHASONE
     Dates: start: 20200525
  31. CARBOPLATIN. [Concomitant]
     Active Substance: CARBOPLATIN
     Indication: NEOPLASM MALIGNANT
  32. ATEZOLIZUMAB. [Suspect]
     Active Substance: ATEZOLIZUMAB
     Indication: NON-SMALL CELL LUNG CANCER METASTATIC
     Dosage: ON 19/JAN/2021, SHE RECEIVED MOST RECENT DOSE OF ATEZOLIZUMAB (1200 MG) PRIOR TO ONSET OF SERIOUS AD
     Route: 042
     Dates: start: 20200706
  33. CIPRALEX [Concomitant]
     Active Substance: ESCITALOPRAM OXALATE
  34. LIXIANA [Concomitant]
     Active Substance: EDOXABAN TOSYLATE
     Dates: start: 20200420
  35. AVELOX [Concomitant]
     Active Substance: MOXIFLOXACIN HYDROCHLORIDE
     Dates: start: 20210205, end: 20210211
  36. ATEZOLIZUMAB. [Suspect]
     Active Substance: ATEZOLIZUMAB
     Route: 042
     Dates: start: 20200327
  37. ZOLDEM [Concomitant]
     Active Substance: ZOLPIDEM TARTRATE
  38. BERODUAL [Concomitant]
     Active Substance: FENOTEROL HYDROBROMIDE\IPRATROPIUM BROMIDE
     Dosage: PRN (AS NEEDED)
     Dates: start: 202002
  39. CAL D VITA [Concomitant]
     Dates: start: 20200327
  40. BETAISODONA [Concomitant]
     Active Substance: POVIDONE-IODINE
     Dates: start: 20200727
  41. PREDNISOLONE. [Concomitant]
     Active Substance: PREDNISOLONE
     Dates: start: 20210210, end: 20210301
  42. IMODIUM AKUT [Concomitant]
     Active Substance: LOPERAMIDE
     Dosage: PRN (AS NEEDED)
  43. GLANDOMED [Concomitant]
     Dates: start: 20200817

REACTIONS (1)
  - Hypokalaemia [Recovered/Resolved]

NARRATIVE: CASE EVENT DATE: 20210208
